FAERS Safety Report 4599365-X (Version None)
Quarter: 2005Q1

REPORT INFORMATION
  Report Type: 
  Country: None (occurrence: None)
  Receive Date: 20050302
  Receipt Date: 20050302
  Transmission Date: 20050727
  Serious: Yes (Hospitalization)
  Sender: FDA-Public Use
  Company Number: None

PATIENT
  Age: 46 Year
  Sex: Male
  Weight: 49.5 kg

DRUGS (3)
  1. CETUXIMAB [Suspect]
     Dosage: 400MG/M2
     Dates: start: 20050208
  2. CARBOPLATIN [Suspect]
     Indication: GASTRIC CANCER
     Dosage: 50MG/M2
     Dates: start: 20050214
  3. TAXOL [Suspect]
     Indication: GASTRIC CANCER
     Dates: start: 20050222

REACTIONS (4)
  - DEHYDRATION [None]
  - DIARRHOEA [None]
  - SKIN TURGOR DECREASED [None]
  - VOMITING [None]
